FAERS Safety Report 11096772 (Version 2)
Quarter: 2015Q2

REPORT INFORMATION
  Report Type: Spontaneous
  Country: US (occurrence: None)
  Receive Date: 20150505
  Receipt Date: 20150601
  Transmission Date: 20150821
  Serious: Yes (Disabling, Other)
  Sender: FDA-Public Use
  Company Number: 2015AKN00244

PATIENT
  Age: 15 Year
  Sex: Female
  Weight: 53.5 kg

DRUGS (5)
  1. FLONASE (FLUTICASONE) [Concomitant]
  2. ALLEGRA [Concomitant]
     Active Substance: FEXOFENADINE HYDROCHLORIDE
  3. ZYRTEC (CETIRIZINE) [Concomitant]
  4. SINGULAIR [Concomitant]
     Active Substance: MONTELUKAST SODIUM
  5. MYORISAN [Suspect]
     Active Substance: ISOTRETINOIN
     Indication: ACNE
     Route: 048
     Dates: end: 20150303

REACTIONS (6)
  - Stress [None]
  - Educational problem [None]
  - Anxiety [None]
  - Depression [None]
  - Mood altered [None]
  - Learning disability [None]

NARRATIVE: CASE EVENT DATE: 201412
